FAERS Safety Report 6589020-9 (Version None)
Quarter: 2010Q1

REPORT INFORMATION
  Report Type: 
  Country: None (occurrence: None)
  Receive Date: 20100218
  Receipt Date: 20091030
  Transmission Date: 20100710
  Serious: No
  Sender: FDA-Public Use
  Company Number: US-BRISTOL-MYERS SQUIBB COMPANY-14838403

PATIENT
  Age: 14 Year
  Sex: Male
  Weight: 73 kg

DRUGS (1)
  1. CEFZIL [Suspect]
     Indication: SINUSITIS
     Dosage: DISCONTINUED ON 23OCT09
     Dates: start: 20091015, end: 20091021

REACTIONS (3)
  - DISTURBANCE IN ATTENTION [None]
  - FLAT AFFECT [None]
  - SOMNOLENCE [None]
